FAERS Safety Report 13971547 (Version 1)
Quarter: 2017Q3

REPORT INFORMATION
  Report Type: Spontaneous
  Country: US (occurrence: US)
  Receive Date: 20170914
  Receipt Date: 20170914
  Transmission Date: 20171128
  Serious: Yes (Disabling)
  Sender: FDA-Public Use
  Company Number: None

PATIENT
  Age: 58 Year
  Sex: Female
  Weight: 54 kg

DRUGS (3)
  1. VITAMIN D [Concomitant]
     Active Substance: CHOLECALCIFEROL
  2. MRI GADNOLINIUM DYE [Suspect]
     Active Substance: GADOLINIUM
     Indication: ARTHRALGIA
     Dosage: ?          OTHER STRENGTH:ML;QUANTITY:1 15ML;OTHER FREQUENCY:8 XRAYS;OTHER ROUTE:IV AND IN HBIP?
     Route: 042
     Dates: end: 20170519
  3. TRAMADOL. [Concomitant]
     Active Substance: TRAMADOL

REACTIONS (3)
  - Cardiovascular disorder [None]
  - Nausea [None]
  - Pain [None]
